FAERS Safety Report 17961732 (Version 1)
Quarter: 2020Q2

REPORT INFORMATION
  Report Type: Spontaneous
  Country: US (occurrence: US)
  Receive Date: 20200629
  Receipt Date: 20200629
  Transmission Date: 20200714
  Serious: No
  Sender: FDA-Public Use
  Company Number: US-ROCHE-2479370

PATIENT
  Sex: Female
  Weight: 39.95 kg

DRUGS (5)
  1. BIOTIN [Concomitant]
     Active Substance: BIOTIN
  2. XELODA [Suspect]
     Active Substance: CAPECITABINE
     Indication: OVARIAN CANCER
     Dosage: 150 MG  AND 500 MG
     Route: 048
     Dates: start: 20191009
  3. COQ 10 [Concomitant]
     Active Substance: UBIDECARENONE
  4. CURCUMIN [Concomitant]
     Active Substance: CURCUMIN
  5. MILK THISTLE [SILYBUM MARIANUM] [Concomitant]
     Active Substance: DIETARY SUPPLEMENT\HERBALS\MILK THISTLE

REACTIONS (3)
  - Dyspepsia [Unknown]
  - Oral pain [Recovering/Resolving]
  - Off label use [Unknown]
